FAERS Safety Report 17494731 (Version 1)
Quarter: 2020Q1

REPORT INFORMATION
  Report Type: Spontaneous
  Country: US (occurrence: US)
  Receive Date: 20200304
  Receipt Date: 20200304
  Transmission Date: 20200409
  Serious: Yes (Hospitalization)
  Sender: FDA-Public Use
  Company Number: US-UNITED THERAPEUTICS-UNT-2020-002675

PATIENT
  Age: 57 Year
  Sex: Female
  Weight: 73.16 kg

DRUGS (2)
  1. TRACLEER [Concomitant]
     Active Substance: BOSENTAN
     Indication: PRODUCT USED FOR UNKNOWN INDICATION
     Dosage: UNK
     Route: 065
  2. REMODULIN [Suspect]
     Active Substance: TREPROSTINIL
     Indication: PULMONARY ARTERIAL HYPERTENSION
     Dosage: 0.051 ?G/KG, CONTINUING
     Route: 058
     Dates: start: 20160812

REACTIONS (7)
  - Peripheral swelling [Unknown]
  - Infusion site discharge [Unknown]
  - Infusion site induration [Unknown]
  - Infusion site bruising [Unknown]
  - Purulent discharge [Unknown]
  - Infusion site irritation [Unknown]
  - Swelling [Unknown]

NARRATIVE: CASE EVENT DATE: 202002
